FAERS Safety Report 12877656 (Version 1)
Quarter: 2016Q4

REPORT INFORMATION
  Report Type: Spontaneous
  Country: US (occurrence: US)
  Receive Date: 20161024
  Receipt Date: 20161024
  Transmission Date: 20170207
  Serious: No
  Sender: FDA-Public Use
  Company Number: US-PFIZER INC-2016488729

PATIENT
  Age: 73 Year
  Sex: Female

DRUGS (3)
  1. IODINE. [Suspect]
     Active Substance: IODINE
  2. ACCUPRIL [Suspect]
     Active Substance: QUINAPRIL HYDROCHLORIDE
  3. BIAXIN [Suspect]
     Active Substance: CLARITHROMYCIN

REACTIONS (1)
  - Drug hypersensitivity [Unknown]
